FAERS Safety Report 5002793-1 (Version None)
Quarter: 2006Q2

REPORT INFORMATION
  Report Type: 
  Country: None (occurrence: None)
  Receive Date: 20060512
  Receipt Date: 20060428
  Transmission Date: 20061013
  Serious: Yes (Other)
  Sender: FDA-Public Use
  Company Number: 2006-04-2299

PATIENT
  Age: 43 Year
  Sex: Male

DRUGS (1)
  1. LORATADINE [Suspect]
     Indication: CONJUNCTIVITIS
     Dosage: ORAL
     Route: 048

REACTIONS (1)
  - HEPATIC LESION [None]
